FAERS Safety Report 7812279-4 (Version None)
Quarter: 2011Q4

REPORT INFORMATION
  Report Type: 
  Country: None (occurrence: None)
  Receive Date: 20111013
  Receipt Date: 20111007
  Transmission Date: 20120403
  Serious: Yes (Hospitalization)
  Sender: FDA-Public Use
  Company Number: US-B.I. PHARMACEUTICALS,INC./RIDGEFIELD-2011-BP-22625BP

PATIENT
  Sex: Male

DRUGS (1)
  1. PRADAXA [Suspect]

REACTIONS (5)
  - LOSS OF CONSCIOUSNESS [None]
  - HAEMORRHAGE [None]
  - OEDEMA PERIPHERAL [None]
  - OEDEMA [None]
  - ANAEMIA [None]
